FAERS Safety Report 5102506-9 (Version None)
Quarter: 2006Q3

REPORT INFORMATION
  Report Type: 
  Country: None (occurrence: None)
  Receive Date: 20060912
  Receipt Date: 20060714
  Transmission Date: 20061208
  Serious: Yes (Hospitalization)
  Sender: FDA-Public Use
  Company Number: JP-ROCHE-456278

PATIENT
  Age: 3 Year
  Sex: Male
  Weight: 13 kg

DRUGS (3)
  1. ROCEPHIN [Suspect]
     Indication: PYREXIA
     Route: 041
     Dates: start: 20060613, end: 20060617
  2. AZITHROMYCIN [Suspect]
     Indication: PYREXIA
     Dosage: DOSE FORM REPORTED AS FINE GRANULE.
     Route: 048
     Dates: start: 20060608
  3. CLARITHROMYCIN [Suspect]
     Indication: PYREXIA
     Route: 048

REACTIONS (6)
  - ASPARTATE AMINOTRANSFERASE INCREASED [None]
  - BLOOD LACTATE DEHYDROGENASE INCREASED [None]
  - FIBRIN D DIMER INCREASED [None]
  - FIBRIN DEGRADATION PRODUCTS INCREASED [None]
  - PYREXIA [None]
  - SERUM FERRITIN INCREASED [None]
